FAERS Safety Report 9935659 (Version 1)
Quarter: 2014Q1

REPORT INFORMATION
  Report Type: Spontaneous
  Country: US (occurrence: US)
  Receive Date: 20140228
  Receipt Date: 20140228
  Transmission Date: 20141002
  Serious: Yes (Hospitalization, Other)
  Sender: FDA-Public Use
  Company Number: US-RB-063877-14

PATIENT
  Age: 27 Year
  Sex: Male

DRUGS (1)
  1. SUBOXONE FILM [Suspect]
     Indication: DRUG DEPENDENCE
     Dosage: SUBOXONE FILM; DOSING DETAILS UNKNOWN; BOUGHT OFF THE STREET
     Route: 060
     Dates: end: 20140212

REACTIONS (6)
  - Substance abuse [Recovered/Resolved]
  - Road traffic accident [Recovered/Resolved]
  - Facial bones fracture [Not Recovered/Not Resolved]
  - Laceration [Not Recovered/Not Resolved]
  - Concussion [Unknown]
  - Wrong technique in drug usage process [Recovered/Resolved]
